FAERS Safety Report 6675122-5 (Version None)
Quarter: 2010Q2

REPORT INFORMATION
  Report Type: 
  Country: None (occurrence: None)
  Receive Date: 20100407
  Receipt Date: 20100323
  Transmission Date: 20101027
  Serious: Yes (Disabling)
  Sender: FDA-Public Use
  Company Number: 2010AP000596

PATIENT
  Age: 73 Year
  Sex: Female

DRUGS (9)
  1. ALENDRONATE SODIUM [Suspect]
     Dosage: 70 MG; QW, PO
     Route: 048
  2. AMITRIPTYLINE HYDROCHLORIDE [Concomitant]
  3. AMLODIPINE [Concomitant]
  4. BOSENTAN (BOSENTAN) [Concomitant]
  5. LANSOPRAZOLE [Concomitant]
  6. CALCIUM CARBONATE [Concomitant]
  7. SODIUM ALGINATE (SODIUM ALGINATE) [Concomitant]
  8. SODIUM BICARBONATE IN PLASTIC CONTAINER [Concomitant]
  9. WARFIRN (WARFIRN) [Concomitant]

REACTIONS (4)
  - GINGIVAL SWELLING [None]
  - IMPAIRED HEALING [None]
  - ORAL INFECTION [None]
  - OSTEONECROSIS [None]
